FAERS Safety Report 4313204-3 (Version None)
Quarter: 2004Q1

REPORT INFORMATION
  Report Type: 
  Country: None (occurrence: None)
  Receive Date: 20040308
  Receipt Date: 20040225
  Transmission Date: 20041129
  Serious: Yes (Other)
  Sender: FDA-Public Use
  Company Number: PHEH2004US02405

PATIENT
  Age: 56 Year
  Sex: Female

DRUGS (3)
  1. ELIDEL [Suspect]
     Indication: RASH
     Dosage: UNK, QD
     Route: 061
     Dates: start: 20040224
  2. SINGULAIR [Concomitant]
  3. LASIX [Concomitant]

REACTIONS (2)
  - APPLICATION SITE DISCOLOURATION [None]
  - ISCHAEMIA [None]
